FAERS Safety Report 6582607-9 (Version None)
Quarter: 2010Q1

REPORT INFORMATION
  Report Type: 
  Country: None (occurrence: None)
  Receive Date: 20100216
  Receipt Date: 20100203
  Transmission Date: 20100710
  Serious: Yes (Hospitalization, Other)
  Sender: FDA-Public Use
  Company Number: US-ELI_LILLY_AND_COMPANY-US201002002380

PATIENT
  Sex: Female

DRUGS (11)
  1. PROZAC [Suspect]
     Indication: DEPRESSION
     Dosage: 40 MG, 2/D
     Dates: end: 20090101
  2. PROZAC [Suspect]
     Dosage: 40 MG, 2/D
     Dates: start: 20090101, end: 20100105
  3. PROZAC [Suspect]
     Dosage: 40 MG, DAILY (1/D)
     Dates: start: 20100105, end: 20100111
  4. CYMBALTA [Suspect]
     Indication: DEPRESSION
     Dosage: 60 MG, DAILY (1/D)
     Dates: start: 20090101, end: 20090101
  5. CYMBALTA [Suspect]
     Dosage: 60 MG, DAILY (1/D)
     Dates: start: 20091202
  6. XANAX [Concomitant]
  7. VICODIN [Concomitant]
  8. NORVASC [Concomitant]
  9. CARISOPRODOL [Concomitant]
  10. SOMA [Concomitant]
  11. ESTROGEN NOS [Concomitant]

REACTIONS (43)
  - ABNORMAL BEHAVIOUR [None]
  - ABNORMAL DREAMS [None]
  - AFFECT LABILITY [None]
  - AGGRESSION [None]
  - AGITATION [None]
  - ANGER [None]
  - ANXIETY [None]
  - CONFUSIONAL STATE [None]
  - CONTUSION [None]
  - CONVULSION [None]
  - COORDINATION ABNORMAL [None]
  - CRYING [None]
  - DIARRHOEA [None]
  - DIZZINESS [None]
  - DRUG INEFFECTIVE [None]
  - DYSPHORIA [None]
  - EXCORIATION [None]
  - FALL [None]
  - FATIGUE [None]
  - FEELING ABNORMAL [None]
  - FLATULENCE [None]
  - HEADACHE [None]
  - HEART RATE INCREASED [None]
  - HOT FLUSH [None]
  - HYPOMANIA [None]
  - INJURY [None]
  - INSOMNIA [None]
  - IRRITABILITY [None]
  - LETHARGY [None]
  - LIMB INJURY [None]
  - LOSS OF CONSCIOUSNESS [None]
  - MALAISE [None]
  - MEMORY IMPAIRMENT [None]
  - MENOPAUSE [None]
  - MOOD SWINGS [None]
  - MUSCLE DISORDER [None]
  - MUSCLE SPASMS [None]
  - OCULAR ICTERUS [None]
  - OSTEOARTHRITIS [None]
  - RESTLESSNESS [None]
  - SENSORY DISTURBANCE [None]
  - SLEEP DISORDER [None]
  - SUICIDAL IDEATION [None]
